FAERS Safety Report 20388554 (Version 1)
Quarter: 2022Q1

REPORT INFORMATION
  Report Type: Spontaneous
  Country: US (occurrence: US)
  Receive Date: 20220128
  Receipt Date: 20220128
  Transmission Date: 20220423
  Serious: No
  Sender: FDA-Public Use
  Company Number: US-ALLERGAN-2140638US

PATIENT
  Sex: Female
  Weight: 81.633 kg

DRUGS (1)
  1. BOTOX [Suspect]
     Active Substance: ONABOTULINUMTOXINA
     Indication: Migraine
     Dosage: UNK, SINGLE
     Dates: start: 202108, end: 202108

REACTIONS (3)
  - Drug ineffective [Unknown]
  - Therapeutic product effect incomplete [Unknown]
  - Therapeutic response delayed [Unknown]
